FAERS Safety Report 16713163 (Version 1)
Quarter: 2019Q3

REPORT INFORMATION
  Report Type: Spontaneous
  Country: CA (occurrence: CA)
  Receive Date: 20190817
  Receipt Date: 20190817
  Transmission Date: 20191004
  Serious: Yes (Other)
  Sender: FDA-Public Use
  Company Number: CA-TEVA-2019-CA-1093706

PATIENT
  Age: 43 Year
  Sex: Female

DRUGS (2)
  1. METHOTREXATE. [Suspect]
     Active Substance: METHOTREXATE
     Indication: ARTHRITIS
     Route: 065
  2. BRENZYS [Suspect]
     Active Substance: ETANERCEPT
     Indication: ANKYLOSING SPONDYLITIS
     Dosage: 50 MILLIGRAM, 1 EVERY 1 WEEKS
     Route: 058

REACTIONS (6)
  - Cough [Unknown]
  - Joint swelling [Unknown]
  - Colitis ulcerative [Unknown]
  - Arthralgia [Unknown]
  - Lung disorder [Unknown]
  - Treatment failure [Unknown]
